FAERS Safety Report 8988334 (Version 1)
Quarter: 2012Q4

REPORT INFORMATION
  Report Type: Spontaneous
  Country: US (occurrence: None)
  Receive Date: 20121218
  Receipt Date: 20121218
  Transmission Date: 20130627
  Serious: Yes (Other)
  Sender: FDA-Public Use
  Company Number: 2012P1066521

PATIENT
  Sex: Female

DRUGS (2)
  1. INFUMORPH [Suspect]
  2. BACLOFEN [Suspect]

REACTIONS (4)
  - Device related infection [None]
  - Therapeutic response decreased [None]
  - Muscle spasticity [None]
  - Hyperhidrosis [None]
